FAERS Safety Report 4375753-1 (Version None)
Quarter: 2004Q2

REPORT INFORMATION
  Report Type: 
  Country: None (occurrence: None)
  Receive Date: 20040610
  Receipt Date: 20040601
  Transmission Date: 20050107
  Serious: Yes (Hospitalization)
  Sender: FDA-Public Use
  Company Number: US-BRISTOL-MYERS SQUIBB COMPANY-12607263

PATIENT
  Age: 59 Year
  Sex: Male

DRUGS (7)
  1. SERZONE [Suspect]
     Indication: DEPRESSION
     Route: 048
     Dates: end: 20020101
  2. EXCEDRIN (MIGRAINE) [Concomitant]
  3. RISPERDAL [Concomitant]
  4. XANAX [Concomitant]
  5. GLUCOTROL [Concomitant]
  6. ZOCOR [Concomitant]
  7. HYDROXYZINE [Concomitant]

REACTIONS (3)
  - GASTROINTESTINAL HAEMORRHAGE [None]
  - HEPATIC CIRRHOSIS [None]
  - VARICES OESOPHAGEAL [None]
